FAERS Safety Report 6942421-9 (Version None)
Quarter: 2010Q3

REPORT INFORMATION
  Report Type: 
  Country: None (occurrence: None)
  Receive Date: 20100826
  Receipt Date: 20100817
  Transmission Date: 20110219
  Serious: Yes (Hospitalization)
  Sender: FDA-Public Use
  Company Number: CA-JNJFOC-20100202621

PATIENT
  Sex: Female
  Weight: 62.7 kg

DRUGS (9)
  1. REMICADE [Suspect]
     Indication: CROHN'S DISEASE
     Route: 042
  2. REMICADE [Suspect]
     Route: 042
  3. REMICADE [Suspect]
     Route: 042
  4. REMICADE [Suspect]
     Route: 042
  5. IMURAN [Suspect]
     Indication: CROHN'S DISEASE
     Route: 048
  6. PENTASA [Concomitant]
     Indication: CROHN'S DISEASE
     Route: 048
  7. ZOPICLONE [Concomitant]
     Indication: CROHN'S DISEASE
     Route: 048
  8. VITAMIN B-12 [Concomitant]
     Indication: CROHN'S DISEASE
     Route: 048
  9. ATIVAN [Concomitant]
     Indication: ANXIETY
     Route: 048

REACTIONS (2)
  - DRUG INEFFECTIVE [None]
  - HEPATIC ENZYME INCREASED [None]
